FAERS Safety Report 9391388 (Version 2)
Quarter: 2013Q3

REPORT INFORMATION
  Report Type: Spontaneous
  Country: US (occurrence: US)
  Receive Date: 20130709
  Receipt Date: 20130821
  Transmission Date: 20140515
  Serious: Yes (Other)
  Sender: FDA-Public Use
  Company Number: US-ASTELLAS-2013US007065

PATIENT
  Sex: Male

DRUGS (1)
  1. VESICARE [Suspect]
     Indication: POLLAKIURIA
     Dosage: 20 MG, UID/QD
     Route: 048
     Dates: start: 2012, end: 201306

REACTIONS (2)
  - Overdose [Unknown]
  - Blindness [Unknown]
